FAERS Safety Report 23381791 (Version 1)
Quarter: 2024Q1

REPORT INFORMATION
  Report Type: Spontaneous
  Country: US (occurrence: None)
  Receive Date: 20240108
  Receipt Date: 20240108
  Transmission Date: 20240409
  Serious: Yes (Other)
  Sender: FDA-Public Use
  Company Number: None

PATIENT
  Age: 51 Year
  Sex: Male
  Weight: 106.2 kg

DRUGS (1)
  1. BONIVA [Suspect]
     Active Substance: IBANDRONATE SODIUM
     Indication: Osteoporosis
     Dosage: OTHER FREQUENCY : Q84 DAYS;?
     Route: 042
     Dates: start: 20240105, end: 20240105

REACTIONS (6)
  - Burning sensation [None]
  - Pain in extremity [None]
  - Peripheral swelling [None]
  - Fatigue [None]
  - Nausea [None]
  - Multiple sclerosis [None]

NARRATIVE: CASE EVENT DATE: 20240105
